FAERS Safety Report 4779283-4 (Version None)
Quarter: 2005Q3

REPORT INFORMATION
  Report Type: 
  Country: None (occurrence: None)
  Receive Date: 20050914
  Receipt Date: 20050802
  Transmission Date: 20060218
  Serious: Yes (Other)
  Sender: FDA-Public Use
  Company Number: 412998

PATIENT
  Age: 88 Year
  Sex: Female
  Weight: 53.1 kg

DRUGS (7)
  1. BONIVA [Suspect]
     Indication: OSTEOPOROSIS
     Dosage: 150 MG 1 PER MONTH ORAL
     Route: 048
     Dates: start: 20050615
  2. CARDIZEM (DILITIAZEM) [Concomitant]
  3. LIPITOR [Concomitant]
  4. LASIX [Concomitant]
  5. KLOR-CON [Concomitant]
  6. COUMADIN [Concomitant]
  7. DIGOXIN [Concomitant]

REACTIONS (3)
  - BALANCE DISORDER [None]
  - FALL [None]
  - PAIN [None]
